FAERS Safety Report 4990887-6 (Version None)
Quarter: 2006Q2

REPORT INFORMATION
  Report Type: 
  Country: None (occurrence: None)
  Receive Date: 20060427
  Receipt Date: 20060418
  Transmission Date: 20061013
  Serious: Yes (Other)
  Sender: FDA-Public Use
  Company Number: GXKR2006DE02216

PATIENT
  Age: 52 Year
  Sex: Female

DRUGS (2)
  1. PENICILLIN V [Suspect]
     Indication: NASOPHARYNGITIS
  2. DICLOFENAC (NGX) (DICLOFENAC) [Suspect]
     Indication: ARTHROPATHY

REACTIONS (16)
  - ALANINE AMINOTRANSFERASE INCREASED [None]
  - ASPARTATE AMINOTRANSFERASE INCREASED [None]
  - AURICULAR SWELLING [None]
  - ERYTHEMA [None]
  - EYELID OEDEMA [None]
  - GAMMA-GLUTAMYLTRANSFERASE INCREASED [None]
  - LEUKOCYTOSIS [None]
  - MALAISE [None]
  - NASOPHARYNGITIS [None]
  - PAIN [None]
  - PHARYNGOLARYNGEAL PAIN [None]
  - PYREXIA [None]
  - RASH PUSTULAR [None]
  - SKIN EXFOLIATION [None]
  - STREPTOCOCCAL SEROLOGY POSITIVE [None]
  - SWELLING FACE [None]
